FAERS Safety Report 13258781 (Version 2)
Quarter: 2017Q4

REPORT INFORMATION
  Report Type: Spontaneous
  Country: AU (occurrence: AU)
  Receive Date: 20170222
  Receipt Date: 20171116
  Transmission Date: 20180320
  Serious: Yes (Hospitalization, Other)
  Sender: FDA-Public Use
  Company Number: AU-NOVEL LABORATORIES, INC-2017-00664

PATIENT
  Age: 68 Year
  Sex: Female

DRUGS (5)
  1. OXYCODONE HCL / NALOXONE HCL PROLONGED RELEASE TABLETS [Suspect]
     Active Substance: NALOXONE HYDROCHLORIDE\OXYCODONE HYDROCHLORIDE
     Dosage: 60/30 MG
     Route: 065
  2. OXYCODONE [Suspect]
     Active Substance: OXYCODONE
     Dosage: 5 MG, QID (IMMEDIATE RELEASE)
     Route: 065
  3. OXYCODONE HCL / NALOXONE HCL PROLONGED RELEASE TABLETS [Suspect]
     Active Substance: NALOXONE HYDROCHLORIDE\OXYCODONE HYDROCHLORIDE
     Indication: BONE DISORDER
     Dosage: UNK (SUSTAINED RELEASE)
     Route: 065
  4. OXYCODONE [Suspect]
     Active Substance: OXYCODONE
     Indication: BONE DISORDER
     Dosage: UNK (IMMEDIATE RELEASE)
     Route: 065
  5. OXYCODONE [Suspect]
     Active Substance: OXYCODONE
     Dosage: 60 MG, TID (SUSTAINED RELEASE)
     Route: 065

REACTIONS (11)
  - Respiratory rate decreased [Unknown]
  - Toxicity to various agents [Unknown]
  - Blood bilirubin increased [None]
  - Depressed level of consciousness [Recovering/Resolving]
  - Gamma-glutamyltransferase increased [None]
  - Hepatic function abnormal [Unknown]
  - Blood alkaline phosphatase increased [None]
  - Miosis [Unknown]
  - Blood lactate dehydrogenase increased [None]
  - Aspartate aminotransferase increased [None]
  - Alanine aminotransferase increased [None]
